FAERS Safety Report 19896073 (Version 1)
Quarter: 2021Q3

REPORT INFORMATION
  Report Type: Spontaneous
  Country: ES (occurrence: ES)
  Receive Date: 20210929
  Receipt Date: 20210929
  Transmission Date: 20211014
  Serious: Yes (Other)
  Sender: FDA-Public Use
  Company Number: ES-MYLANLABS-2021M1066080

PATIENT
  Age: 71 Year
  Sex: Male

DRUGS (8)
  1. PRAVAFENIX [Concomitant]
     Active Substance: FENOFIBRATE\PRAVASTATIN
     Dosage: UNK
  2. DAKTARIN                           /00310801/ [Concomitant]
     Active Substance: MICONAZOLE NITRATE
     Dosage: UNK
  3. TAMSULOSIN [Suspect]
     Active Substance: TAMSULOSIN
     Indication: PRODUCT USED FOR UNKNOWN INDICATION
     Dosage: 0.4 MILLIGRAM, 24 HRS
     Route: 048
     Dates: start: 20210313, end: 20210325
  4. TRAJENTA [Concomitant]
     Active Substance: LINAGLIPTIN
     Dosage: UNK
  5. SIMBRINZA [Concomitant]
     Active Substance: BRIMONIDINE TARTRATE\BRINZOLAMIDE
     Dosage: UNK
  6. DUOTRAV [Concomitant]
     Active Substance: TIMOLOL MALEATE\TRAVOPROST
     Dosage: UNK
  7. CAPENON [Concomitant]
     Active Substance: AMLODIPINE BESYLATE\OLMESARTAN MEDOXOMIL
     Dosage: UNK
  8. OMEPRAZOL                          /00661201/ [Concomitant]
     Active Substance: OMEPRAZOLE
     Dosage: UNK

REACTIONS (1)
  - Epidermolysis [Unknown]

NARRATIVE: CASE EVENT DATE: 20210323
